FAERS Safety Report 10153432 (Version 1)
Quarter: 2014Q2

REPORT INFORMATION
  Report Type: Spontaneous
  Country: SE (occurrence: SE)
  Receive Date: 20140505
  Receipt Date: 20140505
  Transmission Date: 20141212
  Serious: Yes (Other)
  Sender: FDA-Public Use
  Company Number: SE-PFIZER INC-2014120095

PATIENT
  Age: 71 Year
  Sex: Male

DRUGS (6)
  1. TROMBYL [Suspect]
     Indication: PROPHYLAXIS
     Route: 048
     Dates: start: 2004, end: 20140220
  2. VENLAFAXINE HCL [Suspect]
     Indication: DEPRESSION
     Route: 048
     Dates: start: 20131001, end: 20140326
  3. SEROXAT ^SMITH KLINE BEECHAM^ [Suspect]
     Indication: DEPRESSION
     Dosage: 40 MG, 1X/DAY
     Route: 048
     Dates: start: 2010
  4. LAKTULOS APELSIN MEDA [Concomitant]
  5. ATARAX [Concomitant]
  6. RANITIDINE [Concomitant]

REACTIONS (2)
  - Deep vein thrombosis [Not Recovered/Not Resolved]
  - Deep vein thrombosis [None]
